FAERS Safety Report 7357993-2 (Version None)
Quarter: 2011Q1

REPORT INFORMATION
  Report Type: 
  Country: None (occurrence: None)
  Receive Date: 20110307
  Receipt Date: 20100708
  Transmission Date: 20110831
  Serious: No
  Sender: FDA-Public Use
  Company Number: AEUSA201000257

PATIENT
  Age: 53 Year
  Sex: Male

DRUGS (9)
  1. SPIRIVA [Concomitant]
  2. ASPIRIN [Concomitant]
  3. BENADRYL [Concomitant]
  4. PROLASTIN [Suspect]
     Indication: ALPHA-1 ANTI-TRYPSIN DEFICIENCY
     Dosage: IV
     Route: 042
     Dates: start: 20070101, end: 20100401
  5. PROLASTIN-C [Suspect]
     Indication: ALPHA-1 ANTI-TRYPSIN DEFICIENCY
     Dosage: QOW;IV
     Route: 042
     Dates: start: 20100401
  6. COMBIVENT [Concomitant]
  7. PREDNISONE [Concomitant]
  8. THEOPHYLLINE [Concomitant]
  9. GLUCOSAMINE [Concomitant]

REACTIONS (1)
  - URTICARIA [None]
